FAERS Safety Report 26075008 (Version 1)
Quarter: 2025Q4

REPORT INFORMATION
  Report Type: Spontaneous
  Country: US (occurrence: US)
  Receive Date: 20251121
  Receipt Date: 20251121
  Transmission Date: 20260118
  Serious: No
  Sender: PFIZER
  Company Number: US-PFIZER INC-PV202500137427

PATIENT
  Age: 22 Year
  Sex: Female

DRUGS (2)
  1. XELJANZ XR [Suspect]
     Active Substance: TOFACITINIB CITRATE
     Indication: Rheumatoid arthritis
     Dosage: 11 MG, 1X/DAY
     Route: 048
     Dates: start: 202510, end: 202511
  2. ENBREL [Concomitant]
     Active Substance: ETANERCEPT
     Dosage: UNK (SURECLICK PF AUTOINJ)

REACTIONS (1)
  - Illness [Unknown]
